FAERS Safety Report 10378983 (Version 3)
Quarter: 2014Q4

REPORT INFORMATION
  Report Type: Spontaneous
  Country: IT (occurrence: IT)
  Receive Date: 20140812
  Receipt Date: 20141212
  Transmission Date: 20150528
  Serious: Yes (Hospitalization)
  Sender: FDA-Public Use
  Company Number: IT-PFIZER INC-2014223937

PATIENT
  Age: 45 Year
  Sex: Female

DRUGS (6)
  1. CYMBALTA [Interacting]
     Active Substance: DULOXETINE HYDROCHLORIDE
     Indication: DEPRESSION
  2. TAVOR [Interacting]
     Active Substance: LORAZEPAM
     Indication: ANXIETY
     Dosage: 1 MG, DAILY
     Route: 048
     Dates: start: 20140501, end: 20140808
  3. TAVOR [Interacting]
     Active Substance: LORAZEPAM
     Dosage: 2.5 MG, TOTAL
     Route: 048
     Dates: start: 20140721, end: 20140721
  4. CYMBALTA [Interacting]
     Active Substance: DULOXETINE HYDROCHLORIDE
     Indication: BLUNTED AFFECT
     Dosage: 120 MG, DAILY
     Route: 048
     Dates: start: 20140701, end: 20140808
  5. PALEXIA [Interacting]
     Active Substance: TAPENTADOL HYDROCHLORIDE
     Indication: FIBROMYALGIA
     Dosage: 50 MG, DAILY
     Route: 048
     Dates: start: 20140601, end: 20140808
  6. FRONTAL [Suspect]
     Active Substance: ALPRAZOLAM
     Indication: ANXIETY
     Dosage: 4 MG, AS NEEDED
     Route: 048
     Dates: start: 20140501, end: 20140808

REACTIONS (8)
  - Nausea [Recovered/Resolved]
  - Injury [Unknown]
  - Syncope [Recovered/Resolved]
  - Drug interaction [Recovered/Resolved]
  - Fall [Recovered/Resolved]
  - Sopor [Unknown]
  - Vomiting [Recovered/Resolved]
  - Head injury [Recovered/Resolved]

NARRATIVE: CASE EVENT DATE: 2014
